FAERS Safety Report 7416872-2 (Version None)
Quarter: 2011Q2

REPORT INFORMATION
  Report Type: 
  Country: None (occurrence: None)
  Receive Date: 20110406
  Receipt Date: 20110322
  Transmission Date: 20111010
  Serious: Yes (Hospitalization, Other)
  Sender: FDA-Public Use
  Company Number: 2011MA002734

PATIENT
  Age: 20 Year
  Sex: Female

DRUGS (1)
  1. CITALOPRAM HYDROBROMIDE [Suspect]
     Indication: SUICIDE ATTEMPT
     Dosage: 1800 MG;1X;PO
     Route: 048

REACTIONS (12)
  - METABOLIC ACIDOSIS [None]
  - SINUS TACHYCARDIA [None]
  - OVERDOSE [None]
  - SUICIDE ATTEMPT [None]
  - GRAND MAL CONVULSION [None]
  - ELECTROCARDIOGRAM QT PROLONGED [None]
  - BLOOD GLUCOSE INCREASED [None]
  - WHITE BLOOD CELL COUNT INCREASED [None]
  - DRUG SCREEN POSITIVE [None]
  - TACHYPNOEA [None]
  - COMA SCALE ABNORMAL [None]
  - HYPOTENSION [None]
